FAERS Safety Report 24770544 (Version 1)
Quarter: 2024Q4

REPORT INFORMATION
  Report Type: Spontaneous
  Country: DE (occurrence: DE)
  Receive Date: 20241224
  Receipt Date: 20241224
  Transmission Date: 20250115
  Serious: Yes (Death, Other)
  Sender: RANBAXY
  Company Number: DE-SUN PHARMACEUTICAL INDUSTRIES LTD-2024RR-485582

PATIENT
  Age: 53 Year
  Sex: Female

DRUGS (2)
  1. GEMCITABINE [Suspect]
     Active Substance: GEMCITABINE
     Indication: Metastases to peritoneum
     Dosage: 6 CYCLES MONOTHERAPY
     Route: 065
  2. TRABECTEDIN [Suspect]
     Active Substance: TRABECTEDIN
     Indication: Metastases to peritoneum
     Dosage: 1.5 MILLIGRAM/SQ. METER, 1DOSE/4WEEKS, 9 CYCLES
     Route: 065

REACTIONS (2)
  - Disease progression [Fatal]
  - Drug intolerance [Unknown]
